FAERS Safety Report 16409731 (Version 1)
Quarter: 2019Q3

REPORT INFORMATION
  Report Type: Spontaneous
  Country: US (occurrence: US)
  Receive Date: 20190607
  Receipt Date: 20190607
  Transmission Date: 20191004
  Serious: No
  Sender: FDA-Public Use
  Company Number: None

PATIENT
  Age: 69 Year
  Sex: Male
  Weight: 87.5 kg

DRUGS (2)
  1. BD ALARIS PUMP INFUSION SET [Suspect]
     Active Substance: DEVICE
  2. TORADOL [Suspect]
     Active Substance: KETOROLAC TROMETHAMINE

REACTIONS (1)
  - Incorrect drug administration rate [None]

NARRATIVE: CASE EVENT DATE: 20190605
